FAERS Safety Report 7304490-6 (Version None)
Quarter: 2011Q1

REPORT INFORMATION
  Report Type: 
  Country: None (occurrence: None)
  Receive Date: 20110221
  Receipt Date: 20110214
  Transmission Date: 20110831
  Serious: Yes (Hospitalization, Other)
  Sender: FDA-Public Use
  Company Number: US-AMGEN-USASP2011008856

PATIENT
  Age: 55 Year
  Sex: Female

DRUGS (2)
  1. METHOTREXATE [Concomitant]
     Dosage: 8 MG, QWK
     Dates: start: 20080101
  2. ENBREL [Suspect]
     Indication: RHEUMATOID ARTHRITIS
     Dosage: 50 MG, QWK
     Dates: start: 20100301

REACTIONS (11)
  - RIB FRACTURE [None]
  - ROAD TRAFFIC ACCIDENT [None]
  - HAEMATOMA [None]
  - DRUG INEFFECTIVE [None]
  - PELVIC FRACTURE [None]
  - CLAVICLE FRACTURE [None]
  - PARAESTHESIA [None]
  - MUSCULAR WEAKNESS [None]
  - JOINT INJURY [None]
  - LIGAMENT RUPTURE [None]
  - MUSCLE SPASMS [None]
